FAERS Safety Report 19809257 (Version 1)
Quarter: 2021Q3

REPORT INFORMATION
  Report Type: Spontaneous
  Country: US (occurrence: US)
  Receive Date: 20210909
  Receipt Date: 20210909
  Transmission Date: 20211014
  Serious: No
  Sender: FDA-Public Use
  Company Number: None

PATIENT
  Age: 72 Year
  Sex: Female
  Weight: 61 kg

DRUGS (14)
  1. ALBUTEROL SULFATE HFA [Concomitant]
     Active Substance: ALBUTEROL SULFATE
  2. ONDANSETRON 4MG [Concomitant]
     Active Substance: ONDANSETRON
  3. LEVETIRACETAM 750MG [Concomitant]
     Active Substance: LEVETIRACETAM
  4. TRELEGY ELLIPTA 100?62.5?25MCG [Concomitant]
  5. CAPECITABINE. [Suspect]
     Active Substance: CAPECITABINE
     Indication: BREAST CANCER
     Dosage: ?          OTHER FREQUENCY:BID FOR 14/21 DAYS;?
     Route: 048
     Dates: start: 20210708, end: 20210908
  6. LEVOTHYROXINE 25MCG [Concomitant]
     Active Substance: LEVOTHYROXINE
  7. LOSARTAN 100MG [Concomitant]
     Active Substance: LOSARTAN
  8. VITAMIN B12 [Concomitant]
     Active Substance: CYANOCOBALAMIN
  9. CENTRUM ADULTS [Concomitant]
  10. FOLIC ACID 1MG [Concomitant]
     Active Substance: FOLIC ACID
  11. VENTOLIN HFA [Concomitant]
     Active Substance: ALBUTEROL SULFATE
  12. PROPRANOLOL 10MG [Concomitant]
     Active Substance: PROPRANOLOL HYDROCHLORIDE
  13. VITAMIN B1 50MG [Concomitant]
  14. DIAZEPAM 5MG [Concomitant]
     Active Substance: DIAZEPAM

REACTIONS (1)
  - Disease progression [None]

NARRATIVE: CASE EVENT DATE: 20210908
